FAERS Safety Report 7043752-7 (Version None)
Quarter: 2010Q4

REPORT INFORMATION
  Report Type: 
  Country: None (occurrence: None)
  Receive Date: 20101013
  Receipt Date: 20101008
  Transmission Date: 20110411
  Serious: Yes (Other)
  Sender: FDA-Public Use
  Company Number: CHPA2010GB15130

PATIENT
  Sex: Female

DRUGS (5)
  1. OTRIVIN [Suspect]
     Indication: SINUS CONGESTION
     Dosage: TOTAL OF 3 DOSES
     Route: 045
     Dates: start: 20100914, end: 20100915
  2. ANTIHYPERTENSIVES [Concomitant]
     Indication: BLOOD PRESSURE
     Dosage: UNK, UNK
     Route: 065
  3. ASPIRIN [Concomitant]
     Dosage: UNK, UNK
     Route: 065
  4. DRUG THERAPY NOS [Concomitant]
     Dosage: UNK, UNK
     Route: 065
  5. THYROXIN [Concomitant]
     Dosage: UNK, UNK
     Route: 065

REACTIONS (2)
  - APPLICATION SITE PAIN [None]
  - SKIN REACTION [None]
